FAERS Safety Report 23210636 (Version 2)
Quarter: 2023Q4

REPORT INFORMATION
  Report Type: Other
  Country: US (occurrence: None)
  Receive Date: 20231121
  Receipt Date: 20231123
  Transmission Date: 20240109
  Serious: Yes (Death)
  Sender: FDA-Public Use
  Company Number: US-ROCHE-3459877

PATIENT
  Age: 72 Year
  Sex: Female

DRUGS (14)
  1. GAVRETO [Suspect]
     Active Substance: PRALSETINIB
     Indication: Lung neoplasm malignant
     Dosage: TAKE 4 CAPSULE(S) BY MOUTH DAILY
     Route: 048
  2. BEVACIZUMAB [Suspect]
     Active Substance: BEVACIZUMAB
     Indication: Product used for unknown indication
     Route: 065
  3. PANTOPRAZOLE [Concomitant]
     Active Substance: PANTOPRAZOLE
     Dosage: ORAL 40 MG ORAL DELAYED RELEASE TABLET
  4. ELIQUIS [Concomitant]
     Active Substance: APIXABAN
     Dosage: 5 MG ORAL TABLET
  5. LORAZEPAM [Concomitant]
     Active Substance: LORAZEPAM
     Dosage: 0.5 MG ORAL TAB
  6. FOLIC ACID [Concomitant]
     Active Substance: FOLIC ACID
     Dosage: 1 MG ORAL TAB
  7. ADVAIR DISKUS [Concomitant]
     Active Substance: FLUTICASONE PROPIONATE\SALMETEROL XINAFOATE
     Dosage: 100 MCG50 MCG DRY POWDER INHALER
  8. VITAMIN B12 [Concomitant]
     Active Substance: CYANOCOBALAMIN
  9. PREDNISONE [Concomitant]
     Active Substance: PREDNISONE
     Dosage: 10 MG
  10. DECADRON [Concomitant]
     Active Substance: DEXAMETHASONE
     Dosage: 10 MG ORAL TAB
  11. ALBUTEROL [Concomitant]
     Active Substance: ALBUTEROL
  12. MEGESTROL [Concomitant]
     Active Substance: MEGESTROL
     Dosage: 40 MG/ML ORAL SUSPENSION
  13. ALIMTA [Concomitant]
     Active Substance: PEMETREXED DISODIUM
  14. LEVOTHYROXINE [Concomitant]
     Active Substance: LEVOTHYROXINE

REACTIONS (2)
  - Pulmonary embolism [Fatal]
  - Drug hypersensitivity [Unknown]

NARRATIVE: CASE EVENT DATE: 20231110
